FAERS Safety Report 4327899-1 (Version None)
Quarter: 2004Q1

REPORT INFORMATION
  Report Type: 
  Country: None (occurrence: None)
  Receive Date: 20040325
  Receipt Date: 20040312
  Transmission Date: 20041129
  Serious: Yes (Hospitalization)
  Sender: FDA-Public Use
  Company Number: NL-JNJFOC-20040303171

PATIENT
  Age: 74 Year
  Sex: Male

DRUGS (12)
  1. CORDIUM (BEPRIDIL HYDROCHLORIDE MONOHYDRATE) TABLETS [Suspect]
     Dosage: 100 MG, ORAL
     Route: 048
     Dates: end: 20040120
  2. ACETYLSALICYLIC ACID SRT [Suspect]
     Dosage: 75 MG
     Dates: end: 20040120
  3. ZOLPIDEM TARTRATE [Suspect]
     Dosage: 10 MG, 1 IN 1 DAY
  4. BRONCHODUAL (DOUVENT) [Suspect]
     Dates: end: 20040120
  5. NITROGLYCERIN [Suspect]
     Dosage: 10 MG, 1 IN 1 DAY
  6. TAMSULOUSIN HYDROCHLORIDE (TAMSOLUSIN HYDROCHLORIDE) [Suspect]
     Dosage: 0.4 MG, 1 IN 1 DAY
     Dates: end: 20040120
  7. SERETIDE (SERETIDE) [Concomitant]
  8. MICERGOLINE (NICERGOLINE) [Concomitant]
  9. ADRAFINIL (ADRAFINIL) [Concomitant]
  10. ACETYLCYSTEINE [Concomitant]
  11. FENSPIRIDE HYDROCHLORIDE (FENSPIRIDE HYDROCHLORIDE) [Concomitant]
  12. NIMESULIDE (NIMESULIDE) [Concomitant]

REACTIONS (3)
  - CONTUSION [None]
  - DRUG INTERACTION [None]
  - THROMBOCYTOPENIC PURPURA [None]
